APPROVED DRUG PRODUCT: TRYPTYR
Active Ingredient: ACOLTREMON
Strength: 0.003%
Dosage Form/Route: SOLUTION/DROPS;OPHTHALMIC
Application: N217370 | Product #001
Applicant: ALCON LABORATORIES INC
Approved: May 28, 2025 | RLD: Yes | RS: Yes | Type: RX

PATENTS:
Patent 11850221 | Expires: Dec 16, 2042
Patent 10028920 | Expires: Sep 8, 2031
Patent 9433679 | Expires: Sep 8, 2031
Patent 9095609 | Expires: Sep 8, 2031
Patent 12336971 | Expires: Dec 16, 2042

EXCLUSIVITY:
Code: NCE | Date: May 28, 2030